FAERS Safety Report 6987203-7 (Version None)
Quarter: 2010Q3

REPORT INFORMATION
  Report Type: 
  Country: None (occurrence: None)
  Receive Date: 20100916
  Receipt Date: 20100908
  Transmission Date: 20110219
  Serious: No
  Sender: FDA-Public Use
  Company Number: US-B.I. PHARMACEUTICALS,INC./RIDGEFIELD-2010-BP-10193BP

PATIENT
  Sex: Female

DRUGS (5)
  1. ATROVENT HFA [Suspect]
     Indication: EMPHYSEMA
     Dosage: 136 MCG
     Route: 055
     Dates: start: 20100902, end: 20100903
  2. COMBIVENT [Concomitant]
     Indication: EMPHYSEMA
  3. ADVAIR DISKUS 100/50 [Concomitant]
     Indication: EMPHYSEMA
  4. PREDNISONE [Concomitant]
     Indication: EMPHYSEMA
  5. OXYGEN [Concomitant]
     Indication: EMPHYSEMA

REACTIONS (2)
  - HEADACHE [None]
  - ORAL DISCOMFORT [None]
